FAERS Safety Report 10383103 (Version 1)
Quarter: 2014Q3

REPORT INFORMATION
  Report Type: Spontaneous
  Country: US (occurrence: US)
  Receive Date: 20140813
  Receipt Date: 20140813
  Transmission Date: 20150326
  Serious: No
  Sender: FDA-Public Use
  Company Number: -SAAVPROD-FABR-1003551

PATIENT
  Age: 62 Year
  Sex: Male

DRUGS (1)
  1. AGALSIDASE BETA [Suspect]
     Active Substance: AGALSIDASE BETA
     Indication: FABRY^S DISEASE
     Dosage: 55 MG, Q2W
     Route: 042
     Dates: start: 20030721

REACTIONS (4)
  - Weight decreased [Unknown]
  - Retching [Unknown]
  - Aphagia [Unknown]
  - Vomiting [Unknown]
